FAERS Safety Report 6270558-9 (Version None)
Quarter: 2009Q3

REPORT INFORMATION
  Report Type: 
  Country: None (occurrence: None)
  Receive Date: 20090716
  Receipt Date: 20090707
  Transmission Date: 20100115
  Serious: Yes (Hospitalization, Other)
  Sender: FDA-Public Use
  Company Number: US-PFIZER INC-2004220432US

PATIENT
  Sex: Female
  Weight: 80 kg

DRUGS (10)
  1. PROVERA [Suspect]
     Indication: HORMONE REPLACEMENT THERAPY
     Dosage: 2.5 MG, UNK
     Route: 048
     Dates: start: 19850101, end: 19950622
  2. PREMARIN [Suspect]
     Indication: HORMONE REPLACEMENT THERAPY
     Dosage: 0.3 MG, UNK
     Dates: start: 19840101
  3. PREMARIN [Suspect]
     Dosage: 0.625 MG, UNK
     Dates: start: 19940602, end: 19950622
  4. PREMPRO [Suspect]
     Indication: HORMONE REPLACEMENT THERAPY
     Dosage: 0.625/2.5MG
     Dates: start: 19950622, end: 20020514
  5. ACETYLSALICYLIC ACID [Concomitant]
     Indication: CARDIAC DISORDER
     Route: 065
  6. NITROGLYCERIN [Concomitant]
     Indication: CHEST PAIN
     Route: 065
     Dates: start: 19980109, end: 19980101
  7. ACTONEL [Concomitant]
     Indication: OSTEOPOROSIS
     Dates: start: 20001216
  8. PROPYLTHIOURACIL [Concomitant]
     Indication: THYROID DISORDER
     Dates: start: 20010911
  9. ALLEGRA [Concomitant]
     Indication: HYPERSENSITIVITY
     Dosage: PRN
     Dates: start: 20010920
  10. ATENOLOL [Concomitant]
     Indication: PALPITATIONS
     Dates: start: 20020307

REACTIONS (1)
  - BREAST CANCER [None]
